FAERS Safety Report 24551413 (Version 2)
Quarter: 2024Q4

REPORT INFORMATION
  Report Type: Report from Study
  Country: NL (occurrence: NL)
  Receive Date: 20241026
  Receipt Date: 20241120
  Transmission Date: 20250114
  Serious: Yes (Hospitalization)
  Sender: ABBVIE
  Company Number: NL-ABBVIE-5878289

PATIENT
  Age: 78 Year
  Sex: Female

DRUGS (15)
  1. CARBIDOPA\LEVODOPA [Suspect]
     Active Substance: CARBIDOPA\LEVODOPA
     Indication: Parkinson^s disease
     Dosage: LD: 0.0 ML, BIR: 0.33 ML/H, HIR: 0.33 ML/H, LIR: 0.16 ML/H, ED: 0.10 ML; GOES TO 24 HOURS
     Route: 058
     Dates: start: 20240805, end: 20240806
  2. CARBIDOPA\LEVODOPA [Suspect]
     Active Substance: CARBIDOPA\LEVODOPA
     Dosage: LD: 0.0 ML, BIR: 0.36 ML/H, HIR: 0.36 ML/H, LIR: 0.19 ML/H, ED: 0.10 ML; REMAINS AT 24 HOURS
     Route: 058
     Dates: start: 20240806, end: 20240807
  3. CARBIDOPA\LEVODOPA [Suspect]
     Active Substance: CARBIDOPA\LEVODOPA
     Dosage: BIR: 0.43 ML/H, LIR: 0.25 ML/H, ED: 0.10 ML
     Route: 058
     Dates: start: 20240918
  4. CARBIDOPA\LEVODOPA [Suspect]
     Active Substance: CARBIDOPA\LEVODOPA
     Dosage: BIR: 0.36 ML/H, LIR: 0.21 ML/H, ED: 0.10 ML; REMAINS AT 24 HOURS
     Route: 058
     Dates: start: 20240807, end: 20240808
  5. CARBIDOPA\LEVODOPA [Suspect]
     Active Substance: CARBIDOPA\LEVODOPA
     Dosage: LD: 0.0 ML, BIR: 0.42 ML/H, HIR: 0.42 ML/H, LIR: 0.25 ML/H, ED: 0.10 ML; REMAINS AT 24 HOURS
     Route: 058
     Dates: start: 20240902, end: 20240917
  6. CARBIDOPA\LEVODOPA [Suspect]
     Active Substance: CARBIDOPA\LEVODOPA
     Dosage: LD: 0.0 ML, BIR: 0.41 ML/H, HIR: 0.41 ML/H, LIR: 0.24 ML/H, ED: 0.10 ML; REMAINS AT 24 HOURS
     Route: 058
     Dates: start: 20240808, end: 20240902
  7. LORAZEPAM [Concomitant]
     Active Substance: LORAZEPAM
     Indication: Nervousness
  8. RIVOTRIL [Concomitant]
     Active Substance: CLONAZEPAM
     Indication: Product used for unknown indication
  9. DOMPERIDONE [Concomitant]
     Active Substance: DOMPERIDONE
     Indication: Product used for unknown indication
  10. CARBIDOPA\LEVODOPA [Concomitant]
     Active Substance: CARBIDOPA\LEVODOPA
     Indication: Product used for unknown indication
     Dosage: 100/25MG, FREQUENCY TEXT: 2 PIECES 5 TIMES A DAY
     Route: 048
     Dates: end: 20240805
  11. CARBIDOPA\LEVODOPA [Concomitant]
     Active Substance: CARBIDOPA\LEVODOPA
     Indication: Product used for unknown indication
     Dosage: 100/25 MG, FREQUENCY TEXT: 1 PIECE 5 TIMES A DAY.
     Route: 048
     Dates: end: 20240805
  12. CARBIDOPA\LEVODOPA [Concomitant]
     Active Substance: CARBIDOPA\LEVODOPA
     Indication: Product used for unknown indication
     Dosage: 50/12.5MG, FREQUENCY TEXT: 2 PIECES ONCE A DAY IF NECESSARY
     Route: 048
     Dates: end: 20240805
  13. POLYETHYLENE GLYCOLS [Concomitant]
     Active Substance: POLYETHYLENE GLYCOLS
     Indication: Product used for unknown indication
  14. Sinemet (Levodopa/Carbidopa) [Concomitant]
     Indication: Product used for unknown indication
  15. Sinemet (Levodopa/Carbidopa) [Concomitant]
     Indication: Product used for unknown indication
     Dosage: 100/25MG; 1 PIECE
     Dates: end: 20240805

REACTIONS (47)
  - Rehabilitation therapy [Not Recovered/Not Resolved]
  - Insomnia [Not Recovered/Not Resolved]
  - Therapeutic product effect incomplete [Not Recovered/Not Resolved]
  - Unevaluable event [Not Recovered/Not Resolved]
  - Paraesthesia [Unknown]
  - Musculoskeletal stiffness [Recovered/Resolved]
  - Tremor [Not Recovered/Not Resolved]
  - On and off phenomenon [Recovered/Resolved]
  - Unevaluable event [Not Recovered/Not Resolved]
  - Paraesthesia oral [Recovering/Resolving]
  - Stress [Not Recovered/Not Resolved]
  - On and off phenomenon [Not Recovered/Not Resolved]
  - Tension [Not Recovered/Not Resolved]
  - Unevaluable event [Not Recovered/Not Resolved]
  - Infusion site vesicles [Recovering/Resolving]
  - Emotional disorder [Unknown]
  - Infusion site hypertrophy [Not Recovered/Not Resolved]
  - Fluid intake reduced [Not Recovered/Not Resolved]
  - Faeces hard [Not Recovered/Not Resolved]
  - Unevaluable event [Not Recovered/Not Resolved]
  - Unevaluable event [Not Recovered/Not Resolved]
  - Weight decreased [Not Recovered/Not Resolved]
  - Increased appetite [Recovered/Resolved]
  - Fatigue [Not Recovered/Not Resolved]
  - Abnormal dreams [Not Recovered/Not Resolved]
  - Bradykinesia [Not Recovered/Not Resolved]
  - Rash macular [Not Recovered/Not Resolved]
  - Gastrointestinal inflammation [Not Recovered/Not Resolved]
  - Middle insomnia [Unknown]
  - Product after taste [Not Recovered/Not Resolved]
  - Loss of personal independence in daily activities [Unknown]
  - Infusion site bruising [Not Recovered/Not Resolved]
  - Skin warm [Not Recovered/Not Resolved]
  - Hyperventilation [Not Recovered/Not Resolved]
  - Decreased appetite [Not Recovered/Not Resolved]
  - Taste disorder [Not Recovered/Not Resolved]
  - Malaise [Not Recovered/Not Resolved]
  - Weight decreased [Recovered/Resolved]
  - Skin disorder [Not Recovered/Not Resolved]
  - Abscess [Recovering/Resolving]
  - Pain [Unknown]
  - Infusion site reaction [Not Recovered/Not Resolved]
  - Hypophagia [Not Recovered/Not Resolved]
  - Illness [Not Recovered/Not Resolved]
  - Pharyngeal mass [Not Recovered/Not Resolved]
  - Nausea [Not Recovered/Not Resolved]
  - Off label use [Not Recovered/Not Resolved]

NARRATIVE: CASE EVENT DATE: 20240101
